FAERS Safety Report 4665320-4 (Version None)
Quarter: 2005Q2

REPORT INFORMATION
  Report Type: 
  Country: None (occurrence: None)
  Receive Date: 20050517
  Receipt Date: 20050504
  Transmission Date: 20051028
  Serious: Yes (Other)
  Sender: FDA-Public Use
  Company Number: 2004077855

PATIENT
  Age: 14 Year
  Sex: Female
  Weight: 94.3482 kg

DRUGS (15)
  1. NEURONTIN [Suspect]
     Indication: BIPOLAR DISORDER
     Dosage: 300 MG ORAL
     Route: 048
     Dates: start: 20020808
  2. LEVOTHYROXINE SODIUM [Concomitant]
  3. CLINDAMYCIN [Concomitant]
  4. QUETIAPINE FUMARATE [Concomitant]
  5. LITHIUM CARBONATE [Concomitant]
  6. MULTIVITAMINS (ASCORBIC ACID, ERGOCALCIFEROL, FOLIC ACID, NCOTINAMIDE, [Concomitant]
  7. PAROXETINE HCL [Concomitant]
  8. CLOZAPINE [Concomitant]
  9. LORAZEPAM [Concomitant]
  10. DOCUSATE SODIUM (DOCUSATE SODIUM) [Concomitant]
  11. MODAFINIL [Concomitant]
  12. TOPIRAMATE [Concomitant]
  13. NALTREXONE HCL [Concomitant]
  14. MEDROXYPROGESTERONE ACETATE [Concomitant]
  15. SALBUTAMOL (SALBUTAMOL) [Concomitant]

REACTIONS (17)
  - AFFECTIVE DISORDER [None]
  - AGGRESSION [None]
  - ALCOHOLISM [None]
  - ANGER [None]
  - DEPRESSION [None]
  - DRUG ABUSER [None]
  - DYSARTHRIA [None]
  - FEELING DRUNK [None]
  - GAIT DISTURBANCE [None]
  - HYPOTHYROIDISM [None]
  - INJURY [None]
  - LEARNING DISORDER [None]
  - LOSS OF CONSCIOUSNESS [None]
  - PAIN [None]
  - PSYCHOTIC DISORDER [None]
  - SCHIZOAFFECTIVE DISORDER [None]
  - SUICIDE ATTEMPT [None]
